FAERS Safety Report 10391024 (Version 1)
Quarter: 2014Q3

REPORT INFORMATION
  Report Type: Spontaneous
  Country: IT (occurrence: IT)
  Receive Date: 20140818
  Receipt Date: 20140818
  Transmission Date: 20150326
  Serious: Yes (Hospitalization)
  Sender: FDA-Public Use
  Company Number: IT-PFIZER INC-2014228387

PATIENT
  Age: 64 Year

DRUGS (4)
  1. METHYLPREDNISOLONE [Suspect]
     Active Substance: METHYLPREDNISOLONE
     Indication: DISCOMFORT
  2. ERYTHROMYCIN. [Suspect]
     Active Substance: ERYTHROMYCIN
     Indication: PYREXIA
     Dosage: 1 G, 2X/DAY
     Route: 048
  3. ERYTHROMYCIN. [Suspect]
     Active Substance: ERYTHROMYCIN
     Indication: DISCOMFORT
  4. METHYLPREDNISOLONE [Suspect]
     Active Substance: METHYLPREDNISOLONE
     Indication: PYREXIA
     Dosage: 16 MG, 2X/DAY
     Route: 048

REACTIONS (2)
  - Hallucination [Recovered/Resolved]
  - Tremor [Recovered/Resolved]
